FAERS Safety Report 9173906 (Version 1)
Quarter: 2013Q1

REPORT INFORMATION
  Report Type: Spontaneous
  Country: GB (occurrence: GB)
  Receive Date: 20130320
  Receipt Date: 20130320
  Transmission Date: 20140127
  Serious: Yes (Other)
  Sender: FDA-Public Use
  Company Number: GB-BAYER-2013-032831

PATIENT
  Sex: 0

DRUGS (2)
  1. ACETYLSALICYLIC ACID [Suspect]
     Dosage: UNK
  2. SALAZOPYRIN [Concomitant]
     Dosage: UNK

REACTIONS (1)
  - Cross sensitivity reaction [None]
